FAERS Safety Report 26119712 (Version 1)
Quarter: 2025Q4

REPORT INFORMATION
  Report Type: Spontaneous
  Country: JP (occurrence: JP)
  Receive Date: 20251204
  Receipt Date: 20251204
  Transmission Date: 20260118
  Serious: Yes (Death, Hospitalization)
  Sender: AMGEN
  Company Number: JP-AMGEN-JPNSP2025235991

PATIENT
  Age: 63 Year
  Sex: Male

DRUGS (2)
  1. BEVACIZUMAB [Suspect]
     Active Substance: BEVACIZUMAB
     Indication: Colorectal adenocarcinoma
     Dosage: UNK (SIX CYCLES)
     Route: 065
  2. Fluorouracil;Leucovorin;Oxaliplatin [Concomitant]
     Indication: Colorectal adenocarcinoma
     Dosage: UNK (SIX CYCLES)
     Route: 065

REACTIONS (3)
  - Cachexia [Fatal]
  - Metastases to meninges [Unknown]
  - Therapy partial responder [Unknown]
